FAERS Safety Report 5241195-X (Version None)
Quarter: 2007Q1

REPORT INFORMATION
  Report Type: 
  Country: None (occurrence: None)
  Receive Date: 20070220
  Receipt Date: 20070209
  Transmission Date: 20070707
  Serious: Yes (Hospitalization)
  Sender: FDA-Public Use
  Company Number: FR-JNJFOC-20070202650

PATIENT
  Age: 64 Year
  Sex: Male

DRUGS (6)
  1. REMICADE [Suspect]
     Indication: RHEUMATOID ARTHRITIS
     Route: 042
  2. ENBREL [Suspect]
     Indication: DRUG USE FOR UNKNOWN INDICATION
     Route: 058
  3. KETOPROFEN [Concomitant]
     Route: 065
  4. CORTANCYL [Concomitant]
     Route: 048
  5. SPECIAFOLDINE [Concomitant]
     Route: 065
  6. METHOTREXATE [Concomitant]
     Route: 065

REACTIONS (1)
  - B-CELL SMALL LYMPHOCYTIC LYMPHOMA [None]
